FAERS Safety Report 5614042-1 (Version None)
Quarter: 2008Q1

REPORT INFORMATION
  Report Type: 
  Country: None (occurrence: None)
  Receive Date: 20080205
  Receipt Date: 20080125
  Transmission Date: 20080703
  Serious: Yes (Other)
  Sender: FDA-Public Use
  Company Number: GB-ROCHE-543853

PATIENT
  Age: 37 Year
  Sex: Male

DRUGS (2)
  1. ROACCUTANE [Suspect]
     Indication: DRUG USE FOR UNKNOWN INDICATION
     Route: 048
     Dates: start: 20071017, end: 20080111
  2. CLOZAPINE [Concomitant]
     Route: 048

REACTIONS (1)
  - MENTAL DISORDER [None]
